FAERS Safety Report 5908266-3 (Version None)
Quarter: 2008Q4

REPORT INFORMATION
  Report Type: 
  Country: None (occurrence: None)
  Receive Date: 20081002
  Receipt Date: 20081002
  Transmission Date: 20090506
  Serious: No
  Sender: FDA-Public Use
  Company Number: None

PATIENT
  Age: 73 Year
  Sex: Female
  Weight: 63.5036 kg

DRUGS (4)
  1. ACTONEL [Suspect]
     Indication: BONE DISORDER
     Dosage: ONE TABLET 1 PR WK  30 MINS BEFORE EATING
     Dates: start: 20050101
  2. ACTONEL [Suspect]
     Indication: BONE DISORDER
     Dosage: ONE TABLET 1 PR WK  30 MINS BEFORE EATING
     Dates: start: 20060101
  3. ACTONEL [Suspect]
     Indication: BONE DISORDER
     Dosage: ONE TABLET 1 PR WK  30 MINS BEFORE EATING
     Dates: start: 20070101
  4. BONIVA [Suspect]
     Indication: BONE DISORDER
     Dosage: ONCE A MONTH 1 HR BEFORE EATING
     Dates: start: 20070701, end: 20080301

REACTIONS (2)
  - ARTHRALGIA [None]
  - PAIN IN EXTREMITY [None]
